FAERS Safety Report 4491423-3 (Version None)
Quarter: 2004Q4

REPORT INFORMATION
  Report Type: 
  Country: None (occurrence: None)
  Receive Date: 20041101
  Receipt Date: 20041101
  Transmission Date: 20050328
  Serious: Yes (Hospitalization)
  Sender: FDA-Public Use
  Company Number: None

PATIENT
  Age: 44 Year
  Sex: Female

DRUGS (11)
  1. CORGARD [Suspect]
     Indication: HYPERTENSION
     Dosage: 80 MG QD ORAL
     Route: 048
     Dates: start: 20000210, end: 20000921
  2. PREDNISONE [Concomitant]
  3. ACETAMINOPHEN AND HYDROCODONE BITARTRATE [Concomitant]
  4. DOXAZOSIN [Concomitant]
  5. AMLODIPINE [Concomitant]
  6. LABETALOL [Concomitant]
  7. FERROUS SULFATE TAB [Concomitant]
  8. CALCIUM CARBONATE [Concomitant]
  9. VITAMIN D [Concomitant]
  10. AMITRIPTYLINE HCL [Concomitant]
  11. DIPHENHYDRAMINE [Concomitant]

REACTIONS (2)
  - GASTROINTESTINAL HAEMORRHAGE [None]
  - THROMBOCYTOPENIA [None]
